FAERS Safety Report 9260797 (Version 1)
Quarter: 2013Q2

REPORT INFORMATION
  Report Type: Spontaneous
  Country: GB (occurrence: GB)
  Receive Date: 20130429
  Receipt Date: 20130429
  Transmission Date: 20140414
  Serious: Yes (Other)
  Sender: FDA-Public Use
  Company Number: GB-MYLANLABS-2013S1008322

PATIENT
  Age: 49 Year
  Sex: Female
  Weight: 72.57 kg

DRUGS (14)
  1. CITALOPRAM HYDROBROMIDE [Suspect]
     Indication: ANXIETY
     Route: 048
     Dates: start: 2008
  2. CITALOPRAM HYDROBROMIDE [Suspect]
     Indication: DEPRESSION
     Route: 048
     Dates: start: 2008
  3. CITALOPRAM HYDROBROMIDE [Suspect]
     Indication: ANXIETY
     Route: 048
     Dates: start: 2013, end: 20130308
  4. CITALOPRAM HYDROBROMIDE [Suspect]
     Indication: DEPRESSION
     Route: 048
     Dates: start: 2013, end: 20130308
  5. CITALOPRAM HYDROBROMIDE [Suspect]
     Indication: ANXIETY
     Route: 048
     Dates: start: 2013
  6. CITALOPRAM HYDROBROMIDE [Suspect]
     Indication: DEPRESSION
     Route: 048
     Dates: start: 2013
  7. AVAMYS [Concomitant]
     Indication: PRODUCT USED FOR UNKNOWN INDICATION
  8. CANDESARTAN [Concomitant]
     Indication: PRODUCT USED FOR UNKNOWN INDICATION
  9. DIAZEPAM [Concomitant]
     Indication: PRODUCT USED FOR UNKNOWN INDICATION
  10. TELFAST [Concomitant]
     Indication: PRODUCT USED FOR UNKNOWN INDICATION
  11. TRAMACET [Concomitant]
     Indication: PRODUCT USED FOR UNKNOWN INDICATION
  12. MSM [Concomitant]
     Indication: PRODUCT USED FOR UNKNOWN INDICATION
  13. FISH OIL [Concomitant]
     Indication: PRODUCT USED FOR UNKNOWN INDICATION
  14. STARFLOWER OIL [Concomitant]
     Indication: PRODUCT USED FOR UNKNOWN INDICATION

REACTIONS (12)
  - Withdrawal syndrome [Recovered/Resolved with Sequelae]
  - Anger [Unknown]
  - Fatigue [Unknown]
  - Alopecia [Unknown]
  - Increased appetite [Unknown]
  - Insomnia [Unknown]
  - Irritability [Unknown]
  - Irritable bowel syndrome [Unknown]
  - Arthralgia [Unknown]
  - Myalgia [Unknown]
  - Muscle tightness [Unknown]
  - Neck pain [Unknown]
